FAERS Safety Report 17377530 (Version 1)
Quarter: 2020Q1

REPORT INFORMATION
  Report Type: Spontaneous
  Country: US (occurrence: US)
  Receive Date: 20200206
  Receipt Date: 20200206
  Transmission Date: 20200409
  Serious: No
  Sender: FDA-Public Use
  Company Number: US-ABBVIE-19K-163-2610626-00

PATIENT
  Sex: Female

DRUGS (3)
  1. XELJANZ [Concomitant]
     Active Substance: TOFACITINIB CITRATE
     Indication: COLITIS ULCERATIVE
     Dates: start: 20181101
  2. XELJANZ [Concomitant]
     Active Substance: TOFACITINIB CITRATE
     Dates: start: 2018
  3. HUMIRA [Suspect]
     Active Substance: ADALIMUMAB
     Indication: COLITIS ULCERATIVE
     Route: 058
     Dates: start: 20180713, end: 20181016

REACTIONS (6)
  - Diplopia [Unknown]
  - Drug hypersensitivity [Unknown]
  - Mouth swelling [Recovered/Resolved]
  - Vision blurred [Unknown]
  - Visual impairment [Unknown]
  - Periorbital swelling [Unknown]

NARRATIVE: CASE EVENT DATE: 2018
